FAERS Safety Report 7241768-9 (Version None)
Quarter: 2011Q1

REPORT INFORMATION
  Report Type: 
  Country: None (occurrence: None)
  Receive Date: 20110124
  Receipt Date: 20110119
  Transmission Date: 20110831
  Serious: Yes (Hospitalization, Other)
  Sender: FDA-Public Use
  Company Number: US-JNJFOC-20101106701

PATIENT
  Sex: Female
  Weight: 53.52 kg

DRUGS (6)
  1. ORTHO TRI-CYCLEN LO [Concomitant]
     Indication: ACNE
     Route: 048
  2. ORTHO TRI-CYCLEN LO [Concomitant]
     Indication: MENORRHAGIA
     Route: 048
  3. YAZ [Concomitant]
     Indication: MENORRHAGIA
     Route: 048
  4. YAZ [Concomitant]
     Indication: ACNE
     Route: 048
  5. CONCERTA [Suspect]
     Route: 048
  6. CONCERTA [Suspect]
     Indication: ATTENTION DEFICIT/HYPERACTIVITY DISORDER
     Route: 048

REACTIONS (8)
  - METABOLIC FUNCTION TEST ABNORMAL [None]
  - NEPHROLITHIASIS [None]
  - PANCREATITIS ACUTE [None]
  - DRUG INEFFECTIVE [None]
  - URINARY TRACT INFECTION [None]
  - DEHYDRATION [None]
  - CONVULSION [None]
  - BLOOD CALCIUM INCREASED [None]
